FAERS Safety Report 5425139-3 (Version None)
Quarter: 2007Q3

REPORT INFORMATION
  Report Type: 
  Country: None (occurrence: None)
  Receive Date: 20070824
  Receipt Date: 20070816
  Transmission Date: 20080115
  Serious: Yes (Other)
  Sender: FDA-Public Use
  Company Number: US-ROCHE-461737

PATIENT
  Sex: Female
  Weight: 3.4 kg

DRUGS (3)
  1. ACCUTANE [Suspect]
     Dosage: STARTED AT 20 MG TWICE DAILY AND LATER DOSE INCREASED TO 30 MG TWICE DAILY.
     Dates: start: 19980321, end: 19980801
  2. ACCUTANE [Suspect]
     Dates: start: 19990420, end: 19990520
  3. UNSPECIFIED DRUG [Concomitant]

REACTIONS (2)
  - NO ADVERSE REACTION [None]
  - NORMAL NEWBORN [None]
